FAERS Safety Report 7345236-5 (Version None)
Quarter: 2011Q1

REPORT INFORMATION
  Report Type: 
  Country: None (occurrence: None)
  Receive Date: 20110310
  Receipt Date: 20110307
  Transmission Date: 20110831
  Serious: Yes (Hospitalization, Disabling)
  Sender: FDA-Public Use
  Company Number: JP-ACTELION-A-CH2011-45948

PATIENT
  Sex: Female

DRUGS (4)
  1. TRACLEER [Suspect]
     Indication: PULMONARY HYPERTENSION
     Dosage: 62.5 MG, BID
     Route: 048
     Dates: start: 20100325, end: 20100519
  2. TRACLEER [Suspect]
     Dosage: 62.5 MG, BID
     Route: 048
     Dates: start: 20100603, end: 20100610
  3. TRACLEER [Suspect]
     Dosage: 125 MG, BID
     Route: 048
     Dates: start: 20100520, end: 20100602
  4. WARFARIN POTASSIUM [Concomitant]

REACTIONS (6)
  - SYNCOPE [None]
  - PAIN IN EXTREMITY [None]
  - FEELING ABNORMAL [None]
  - OEDEMA [None]
  - VERTIGO [None]
  - ERYTHEMA [None]
